FAERS Safety Report 6611625-7 (Version None)
Quarter: 2010Q1

REPORT INFORMATION
  Report Type: 
  Country: None (occurrence: None)
  Receive Date: 20100219
  Receipt Date: 20100203
  Transmission Date: 20100710
  Serious: Yes (Congenital Anomaly)
  Sender: FDA-Public Use
  Company Number: AUR-APL-2010-00360

PATIENT
  Sex: Female

DRUGS (4)
  1. METFORMIN HYDROCHLORIDE [Suspect]
     Dosage: 500MG,TID,TRANSPLACENT
     Route: 064
     Dates: end: 20090612
  2. BYETTA [Suspect]
     Dosage: 10UG, BID, TRANSPLACENT
     Route: 064
     Dates: end: 20090612
  3. INSULIN [Concomitant]
  4. LABETALOL HCL [Concomitant]

REACTIONS (5)
  - CAESAREAN SECTION [None]
  - CONGENITAL ANOMALY [None]
  - INTESTINAL MALROTATION [None]
  - MATERNAL DRUGS AFFECTING FOETUS [None]
  - PREMATURE BABY [None]
